FAERS Safety Report 15555015 (Version 1)
Quarter: 2018Q4

REPORT INFORMATION
  Report Type: Other
  Country: BE (occurrence: BE)
  Receive Date: 20181026
  Receipt Date: 20181026
  Transmission Date: 20190205
  Serious: Yes (Other)
  Sender: FDA-Public Use
  Company Number: BE-APOTEX-2018AP023048

PATIENT
  Age: 70 Year
  Sex: Female

DRUGS (4)
  1. RIVOTRIL [Suspect]
     Active Substance: CLONAZEPAM
     Indication: PRODUCT USED FOR UNKNOWN INDICATION
     Dosage: USED BEFORE THE ONSET OF LESIONS. CURRENTLY STILL USED.
     Route: 065
  2. ACETAMINOPHEN. [Suspect]
     Active Substance: ACETAMINOPHEN
     Indication: PRODUCT USED FOR UNKNOWN INDICATION
     Dosage: USED BEFORE THE ONSET OF LESIONS. CURRENTLY STILL USED.
     Route: 065
  3. CALCITONIN [Suspect]
     Active Substance: CALCITONIN
     Indication: PRODUCT USED FOR UNKNOWN INDICATION
     Dosage: USED BEFORE THE ONSET OF LESIONS. CURRENTLY STOPPED
     Route: 065
  4. OXYCONTIN [Suspect]
     Active Substance: OXYCODONE HYDROCHLORIDE
     Indication: PRODUCT USED FOR UNKNOWN INDICATION
     Dosage: USED BEFORE THE ONSET OF LESIONS. CURRENTLY STOPPED
     Route: 065

REACTIONS (1)
  - Pemphigus [Unknown]
